FAERS Safety Report 5885756-3 (Version None)
Quarter: 2008Q3

REPORT INFORMATION
  Report Type: 
  Country: None (occurrence: None)
  Receive Date: 20080916
  Receipt Date: 20080905
  Transmission Date: 20090109
  Serious: Yes (Hospitalization, Other)
  Sender: FDA-Public Use
  Company Number: US-ELI_LILLY_AND_COMPANY-US200809001618

PATIENT
  Sex: Female

DRUGS (6)
  1. BYETTA [Suspect]
     Indication: TYPE 2 DIABETES MELLITUS
     Dosage: 5 UG, 2/D
     Route: 058
     Dates: start: 20070101, end: 20070101
  2. BYETTA [Suspect]
     Dosage: 5 UG, 2/D
     Route: 058
     Dates: start: 20080501, end: 20080601
  3. BYETTA [Suspect]
     Dosage: 10 UG, 2/D
     Route: 058
     Dates: start: 20080601
  4. GLIPIZIDE [Concomitant]
     Indication: TYPE 2 DIABETES MELLITUS
     Dosage: UNK, 2/D
     Route: 048
  5. AVAPRO [Concomitant]
     Indication: BLOOD PRESSURE
     Dosage: UNK, UNKNOWN
  6. LIPITOR [Concomitant]
     Indication: BLOOD CHOLESTEROL
     Dosage: UNK, UNKNOWN

REACTIONS (9)
  - ACCOMMODATION DISORDER [None]
  - ANOREXIA [None]
  - CHORIORETINOPATHY [None]
  - MALAISE [None]
  - MALIGNANT MELANOMA [None]
  - NAUSEA [None]
  - SURGERY [None]
  - VISUAL ACUITY REDUCED [None]
  - VOMITING [None]
